FAERS Safety Report 6370830-8 (Version None)
Quarter: 2009Q3

REPORT INFORMATION
  Report Type: 
  Country: None (occurrence: None)
  Receive Date: 20090923
  Receipt Date: 20070702
  Transmission Date: 20100115
  Serious: Yes (Hospitalization)
  Sender: FDA-Public Use
  Company Number: US-ASTRAZENECA-2006UW23910

PATIENT
  Age: 17363 Day
  Sex: Female
  Weight: 78.8 kg

DRUGS (8)
  1. SEROQUEL [Suspect]
     Indication: MENTAL DISORDER
     Dosage: 25 - 200 MG
     Route: 048
     Dates: start: 20030512
  2. ZYPREXA [Concomitant]
  3. LEVOXYL [Concomitant]
     Dosage: 75 - 125 MCG
     Dates: start: 20020705
  4. AMBIEN [Concomitant]
     Dates: start: 20030722
  5. LORAZEPAM [Concomitant]
     Dates: start: 20030512
  6. RISPERDAL [Concomitant]
     Dosage: 0.5 MG - 1.0 MG
     Dates: start: 20030720
  7. EFFEXOR XR [Concomitant]
     Dosage: 75 MG - 225 MG
     Dates: start: 20030915
  8. DIAZEPAM [Concomitant]
     Dates: start: 20050502

REACTIONS (2)
  - DIABETES MELLITUS [None]
  - PANCREATITIS [None]
